FAERS Safety Report 17765121 (Version 1)
Quarter: 2020Q2

REPORT INFORMATION
  Report Type: Spontaneous
  Country: IT (occurrence: IT)
  Receive Date: 20200511
  Receipt Date: 20200511
  Transmission Date: 20200714
  Serious: Yes (Hospitalization)
  Sender: FDA-Public Use
  Company Number: IT-ALLERGAN-2018730US

PATIENT
  Sex: Male

DRUGS (3)
  1. CEFTAROLINE FOSAMIL - BP [Suspect]
     Active Substance: CEFTAROLINE FOSAMIL
     Indication: PNEUMONITIS
     Dosage: 1200 MG, QD
     Route: 042
     Dates: start: 20200404, end: 20200406
  2. ZITROMAX AVIUM [Concomitant]
     Active Substance: AZITHROMYCIN
     Indication: CORONAVIRUS INFECTION
     Dosage: 600 MG
     Route: 048
  3. PLAQUENIL [Concomitant]
     Active Substance: HYDROXYCHLOROQUINE SULFATE
     Indication: CORONAVIRUS INFECTION
     Dosage: 2 DF

REACTIONS (3)
  - Product use issue [Unknown]
  - Chills [Recovering/Resolving]
  - Off label use [Unknown]

NARRATIVE: CASE EVENT DATE: 20200404
